FAERS Safety Report 19449410 (Version 1)
Quarter: 2021Q2

REPORT INFORMATION
  Report Type: Spontaneous
  Country: CA (occurrence: CA)
  Receive Date: 20210622
  Receipt Date: 20210622
  Transmission Date: 20210717
  Serious: Yes (Hospitalization, Other)
  Sender: FDA-Public Use
  Company Number: CA-ORGANON-O2106CAN001919

PATIENT
  Age: 72 Year
  Sex: Female
  Weight: 48 kg

DRUGS (24)
  1. RAMIPRIL. [Concomitant]
     Active Substance: RAMIPRIL
     Indication: HYPERTENSION
     Dosage: UNK
     Route: 048
     Dates: start: 2013
  2. ASMANEX [Concomitant]
     Active Substance: MOMETASONE FUROATE
     Indication: SEASONAL ALLERGY
     Dosage: UNK
     Dates: start: 2000
  3. FOSAMAX [Concomitant]
     Active Substance: ALENDRONATE SODIUM
     Indication: OSTEOPOROSIS
     Dosage: UNK
     Route: 048
     Dates: start: 2007
  4. LOPERAMIDE [Concomitant]
     Active Substance: LOPERAMIDE
     Indication: COLITIS
     Dosage: UNK
     Route: 048
     Dates: start: 202102
  5. HYDROCHLOROTHIAZIDE. [Concomitant]
     Active Substance: HYDROCHLOROTHIAZIDE
     Indication: HYPERTENSION
     Dosage: UNK
     Route: 048
     Dates: start: 2013
  6. LOPERAMIDE [Concomitant]
     Active Substance: LOPERAMIDE
     Indication: DIARRHOEA
  7. ZOVIRAX [Concomitant]
     Active Substance: ACYCLOVIR
     Indication: ORAL HERPES
     Dosage: UNK
     Dates: start: 2000
  8. COZAAR [Suspect]
     Active Substance: LOSARTAN POTASSIUM
     Dosage: 25 MILLIGRAM, (DAY 7 DAY 1 AND DAY 14)
     Route: 048
     Dates: start: 20210507, end: 20210507
  9. BINIMETINIB [Suspect]
     Active Substance: BINIMETINIB
     Indication: MALIGNANT MELANOMA
     Dosage: 45 MILLIGRAM, BID
     Route: 048
     Dates: start: 20210507, end: 20210516
  10. NITROFURANTOIN. [Concomitant]
     Active Substance: NITROFURANTOIN
     Indication: URINARY TRACT INFECTION
     Dosage: UNK
     Route: 048
     Dates: start: 20210410
  11. PREDNISONE. [Concomitant]
     Active Substance: PREDNISONE
     Indication: COLITIS
     Dosage: UNK
     Route: 048
     Dates: start: 202104
  12. COZAAR [Suspect]
     Active Substance: LOSARTAN POTASSIUM
     Dosage: 25 MILLIGRAM,  (DAY 7 DAY 1 AND DAY 14)
     Route: 048
     Dates: start: 20210430, end: 20210430
  13. NYSTATIN. [Concomitant]
     Active Substance: NYSTATIN
     Indication: ORAL CANDIDIASIS
     Dosage: UNK
     Dates: start: 20210410
  14. TRAVOPROST. [Concomitant]
     Active Substance: TRAVOPROST
     Indication: GLAUCOMA
     Dosage: UNK
     Dates: start: 2015
  15. MIDAZOLAM. [Suspect]
     Active Substance: MIDAZOLAM
     Dosage: 2 MILLIGRAM (DAY 7 DAY 1 AND DAY 14)
     Route: 048
     Dates: start: 20210507, end: 20210507
  16. CAFFEINE. [Suspect]
     Active Substance: CAFFEINE
     Dosage: 50 MILLIGRAM (DAY 7 DAY 1 AND DAY 14)
     Route: 048
     Dates: start: 20210507, end: 20210507
  17. ENCORAFENIB [Suspect]
     Active Substance: ENCORAFENIB
     Indication: MALIGNANT MELANOMA
     Dosage: 450 MILLIGRAM, ONCE
     Route: 048
     Dates: start: 20210507, end: 20210517
  18. MIDAZOLAM. [Suspect]
     Active Substance: MIDAZOLAM
     Dosage: 2 MILLIGRAM (DAY 7 DAY 1 AND DAY 14)
     Route: 048
     Dates: start: 20210430, end: 20210430
  19. OMEPRAZOLE. [Suspect]
     Active Substance: OMEPRAZOLE
     Dosage: 20 MILLIGRAM (DAY 7 DAY 1 AND DAY 14)
     Route: 048
     Dates: start: 20210430, end: 20210430
  20. OMEPRAZOLE. [Suspect]
     Active Substance: OMEPRAZOLE
     Dosage: 20 MILLIGRAM (DAY 7 DAY 1 AND DAY 14)
     Route: 048
     Dates: start: 20210507, end: 20210507
  21. DEXTROMETHORPHAN [Suspect]
     Active Substance: DEXTROMETHORPHAN
     Dosage: 15 MILLIGRAM (DAY 7 DAY 1 AND DAY 14)
     Route: 048
     Dates: start: 20210507, end: 20210507
  22. HYDROMORPHONE HCL [Concomitant]
     Active Substance: HYDROMORPHONE HYDROCHLORIDE
     Indication: BACK PAIN
     Dosage: UNK
     Route: 048
     Dates: start: 20201007
  23. DEXTROMETHORPHAN [Suspect]
     Active Substance: DEXTROMETHORPHAN
     Dosage: 15 MILLIGRAM (DAY 7 DAY 1 AND DAY 14)
     Route: 048
     Dates: start: 20210430, end: 20210430
  24. CAFFEINE. [Suspect]
     Active Substance: CAFFEINE
     Dosage: 50 MILLIGRAM (DAY 7 DAY 1 AND DAY 14)
     Route: 048
     Dates: start: 20210430, end: 20210430

REACTIONS (1)
  - Pneumonia [Not Recovered/Not Resolved]

NARRATIVE: CASE EVENT DATE: 20210517
